FAERS Safety Report 6878560-0 (Version None)
Quarter: 2010Q3

REPORT INFORMATION
  Report Type: 
  Country: None (occurrence: None)
  Receive Date: 20100728
  Receipt Date: 20100714
  Transmission Date: 20110219
  Serious: Yes (Hospitalization)
  Sender: FDA-Public Use
  Company Number: A0804166A

PATIENT
  Age: 59 Year
  Sex: Male

DRUGS (7)
  1. AVANDIA [Suspect]
     Dosage: 8MG PER DAY
     Route: 048
     Dates: start: 20020601, end: 20070101
  2. SYNTHROID [Concomitant]
  3. ZOSYN [Concomitant]
  4. IMDUR [Concomitant]
  5. METOPROLOL [Concomitant]
  6. VASOTEC [Concomitant]
  7. HUMULIN R [Concomitant]

REACTIONS (2)
  - CARDIAC FAILURE CONGESTIVE [None]
  - MYOCARDIAL INFARCTION [None]
